FAERS Safety Report 9630229 (Version 1)
Quarter: 2013Q4

REPORT INFORMATION
  Report Type: Spontaneous
  Country: US (occurrence: US)
  Receive Date: 20131017
  Receipt Date: 20131017
  Transmission Date: 20140711
  Serious: No
  Sender: FDA-Public Use
  Company Number: US-009507513-1310USA001720

PATIENT
  Age: 59 Year
  Sex: Male

DRUGS (3)
  1. PEGINTRON [Suspect]
     Indication: HEPATITIS C
     Dosage: REDIPEN
     Dates: start: 20130927
  2. REBETOL [Suspect]
     Indication: HEPATITIS C
     Dosage: UNK
     Route: 048
     Dates: start: 20130927
  3. TELAPREVIR [Suspect]
     Dosage: UNK
     Dates: start: 20130927

REACTIONS (8)
  - Tremor [Unknown]
  - Feeling abnormal [Recovered/Resolved]
  - Pyrexia [Recovering/Resolving]
  - Influenza like illness [Unknown]
  - Chills [Unknown]
  - Headache [Unknown]
  - Fatigue [Unknown]
  - Dyspnoea [Unknown]
